FAERS Safety Report 6593710-1 (Version None)
Quarter: 2010Q1

REPORT INFORMATION
  Report Type: 
  Country: None (occurrence: None)
  Receive Date: 20100222
  Receipt Date: 20091211
  Transmission Date: 20100710
  Serious: Yes (Other)
  Sender: FDA-Public Use
  Company Number: US-BRISTOL-MYERS SQUIBB COMPANY-14891790

PATIENT
  Age: 63 Year
  Sex: Female

DRUGS (4)
  1. ORENCIA [Suspect]
     Indication: RHEUMATOID ARTHRITIS
     Route: 042
  2. BENADRYL [Concomitant]
     Indication: PREMEDICATION
     Route: 042
  3. STEROIDS [Concomitant]
     Indication: PREMEDICATION
  4. ACETAMINOPHEN [Concomitant]
     Indication: PREMEDICATION

REACTIONS (1)
  - URTICARIA [None]
